FAERS Safety Report 5333026-4 (Version None)
Quarter: 2007Q1

REPORT INFORMATION
  Report Type: 
  Country: None (occurrence: None)
  Receive Date: 20070306
  Receipt Date: 20060615
  Transmission Date: 20070707
  Serious: Yes (Other)
  Sender: FDA-Public Use
  Company Number: A03200604092

PATIENT
  Age: 67 Year
  Sex: Male

DRUGS (6)
  1. PLAVIX [Suspect]
     Indication: STENT PLACEMENT
     Dosage: 300 MG ONCE - ORAL
     Route: 048
  2. PLAVIX [Suspect]
     Indication: STENT PLACEMENT
     Dosage: 75 MG QD - ORAL
     Route: 048
  3. TICLID [Suspect]
     Indication: STENT PLACEMENT
     Dosage: ORAL
     Route: 048
  4. ACETYLSALICYLIC ACID SRT [Concomitant]
  5. EPTIFIBATIDE [Concomitant]
  6. HEPARIN [Concomitant]

REACTIONS (3)
  - ACUTE MYOCARDIAL INFARCTION [None]
  - DRUG RESISTANCE [None]
  - THROMBOSIS IN DEVICE [None]
